FAERS Safety Report 4448809-2 (Version None)
Quarter: 2004Q3

REPORT INFORMATION
  Report Type: 
  Country: None (occurrence: None)
  Receive Date: 20040909
  Receipt Date: 20040830
  Transmission Date: 20050211
  Serious: No
  Sender: FDA-Public Use
  Company Number: 2004UW18223

PATIENT
  Age: 48 Year
  Sex: Male

DRUGS (11)
  1. SEROQUEL [Suspect]
     Indication: ANXIETY
     Dosage: SEE IMAGE
     Route: 048
     Dates: start: 20040323
  2. SEROQUEL [Suspect]
     Indication: SLEEP DISORDER
     Dosage: SEE IMAGE
     Route: 048
     Dates: start: 20040323
  3. RIVOTRIL [Concomitant]
  4. PAXIL [Concomitant]
  5. REMERON [Concomitant]
  6. CELEXA [Concomitant]
  7. TRAZODONE [Concomitant]
  8. IMOVANE [Concomitant]
  9. ATIVAN [Concomitant]
  10. INTERFERON [Concomitant]
  11. ZYPREXA [Concomitant]

REACTIONS (7)
  - AGITATION [None]
  - ANXIETY [None]
  - HYPERMETABOLISM [None]
  - INSOMNIA [None]
  - MAJOR DEPRESSION [None]
  - RESTLESSNESS [None]
  - TREMOR [None]
